FAERS Safety Report 7137704-6 (Version None)
Quarter: 2010Q4

REPORT INFORMATION
  Report Type: 
  Country: None (occurrence: None)
  Receive Date: 20101206
  Receipt Date: 20101124
  Transmission Date: 20110411
  Serious: Yes (Other)
  Sender: FDA-Public Use
  Company Number: JP-BAYER-2010-000088

PATIENT
  Sex: Female

DRUGS (2)
  1. AVELOX [Suspect]
     Route: 048
  2. ANTITUSSIVES AND EXPECTORANTS, COMBINATIONS [Concomitant]
     Route: 048

REACTIONS (1)
  - ANAPHYLACTOID REACTION [None]
